FAERS Safety Report 16315670 (Version 1)
Quarter: 2019Q2

REPORT INFORMATION
  Report Type: Spontaneous
  Country: JP (occurrence: JP)
  Receive Date: 20190515
  Receipt Date: 20190515
  Transmission Date: 20190711
  Serious: Yes (Other)
  Sender: FDA-Public Use
  Company Number: PHHY2019JP100010

PATIENT
  Age: 78 Year
  Sex: Male

DRUGS (9)
  1. 5-FU [Suspect]
     Active Substance: FLUOROURACIL
     Indication: METASTASES TO LUNG
  2. 5-FU [Suspect]
     Active Substance: FLUOROURACIL
     Indication: OESOPHAGEAL SQUAMOUS CELL CARCINOMA
     Dosage: 480 MG/M2, DAY 1-5
     Route: 065
  3. CISPLATIN. [Suspect]
     Active Substance: CISPLATIN
     Indication: METASTASES TO LUNG
  4. CISPLATIN. [Suspect]
     Active Substance: CISPLATIN
     Indication: GASTRIC CANCER
  5. 5-FU [Suspect]
     Active Substance: FLUOROURACIL
     Indication: GASTRIC CANCER
  6. DOCETAXEL. [Suspect]
     Active Substance: DOCETAXEL
     Indication: GASTRIC CANCER
  7. CISPLATIN. [Suspect]
     Active Substance: CISPLATIN
     Indication: OESOPHAGEAL SQUAMOUS CELL CARCINOMA
     Dosage: 56 MG/M2 DAY 1
     Route: 065
  8. DOCETAXEL. [Suspect]
     Active Substance: DOCETAXEL
     Indication: OESOPHAGEAL SQUAMOUS CELL CARCINOMA
     Dosage: 48 MG/M2, DAY 1
     Route: 065
  9. DOCETAXEL. [Suspect]
     Active Substance: DOCETAXEL
     Indication: METASTASES TO LUNG

REACTIONS (5)
  - Pneumonia aspiration [Recovering/Resolving]
  - Infectious pleural effusion [Recovering/Resolving]
  - Metastases to liver [Unknown]
  - Mediastinitis [Recovering/Resolving]
  - Pyrexia [Recovering/Resolving]
